FAERS Safety Report 4517663-2 (Version None)
Quarter: 2004Q4

REPORT INFORMATION
  Report Type: 
  Country: None (occurrence: None)
  Receive Date: 20041203
  Receipt Date: 20041124
  Transmission Date: 20050328
  Serious: Yes (Hospitalization)
  Sender: FDA-Public Use
  Company Number: BR-JNJFOC-20041200053

PATIENT
  Age: 75 Year
  Sex: Female

DRUGS (4)
  1. HALDOL [Suspect]
     Indication: DEMENTIA
     Route: 049
  2. HALDOL [Suspect]
     Indication: NERVOUSNESS
     Route: 049
  3. RISPERIDONE [Suspect]
  4. FENERGAN [Concomitant]
     Indication: NERVOUSNESS

REACTIONS (6)
  - ASTHENIA [None]
  - DEMENTIA ALZHEIMER'S TYPE [None]
  - HYPERTENSION [None]
  - INCREASED APPETITE [None]
  - SALIVARY HYPERSECRETION [None]
  - URINARY INCONTINENCE [None]
